FAERS Safety Report 6074257-8 (Version None)
Quarter: 2009Q1

REPORT INFORMATION
  Report Type: 
  Country: None (occurrence: None)
  Receive Date: 20090211
  Receipt Date: 20090203
  Transmission Date: 20090719
  Serious: Yes (Other)
  Sender: FDA-Public Use
  Company Number: PHBS2007AT10802

PATIENT
  Sex: Female

DRUGS (4)
  1. ZOMETA [Suspect]
     Indication: PROPHYLAXIS
  2. CORTICOSTEROID NOS [Suspect]
     Indication: ARTERITIS
     Dosage: UNK
     Dates: start: 20060101
  3. CORTICOSTEROID NOS [Suspect]
     Dosage: UNK
     Dates: start: 20061201
  4. CORTISONE [Concomitant]
     Indication: TEMPORAL ARTERITIS
     Dosage: UNK
     Dates: start: 20030101

REACTIONS (6)
  - DENTAL CARE [None]
  - FRACTURE [None]
  - OSTEONECROSIS [None]
  - PAIN [None]
  - QUALITY OF LIFE DECREASED [None]
  - SENSATION OF PRESSURE [None]
